FAERS Safety Report 10182773 (Version 1)
Quarter: 2014Q2

REPORT INFORMATION
  Report Type: Spontaneous
  Country: US (occurrence: US)
  Receive Date: 20140520
  Receipt Date: 20140520
  Transmission Date: 20141212
  Serious: No
  Sender: FDA-Public Use
  Company Number: US-GE HEALTHCARE MEDICAL DIAGNOSTICS-DMSA-PR-1404S-0001

PATIENT
  Age: 71 Year
  Sex: Male

DRUGS (2)
  1. TECHNETIUM TC99M DMSA [Suspect]
     Indication: KIDNEY INFECTION
     Route: 042
     Dates: start: 20140402, end: 20140402
  2. TECHNETIUM TC99M DMSA [Suspect]
     Indication: DIAGNOSTIC PROCEDURE

REACTIONS (2)
  - Radioisotope scan abnormal [Recovered/Resolved]
  - No adverse event [Recovered/Resolved]
